FAERS Safety Report 12705991 (Version 1)
Quarter: 2016Q3

REPORT INFORMATION
  Report Type: Spontaneous
  Country: US (occurrence: None)
  Receive Date: 20160831
  Receipt Date: 20160831
  Transmission Date: 20161109
  Serious: Yes (Hospitalization)
  Sender: FDA-Public Use
  Company Number: None

PATIENT
  Age: 50 Year
  Sex: Female
  Weight: 104.33 kg

DRUGS (2)
  1. ATORVASTATIN/PLACEBO, 40MG [Suspect]
     Active Substance: ATORVASTATIN
     Indication: PROPHYLAXIS
     Route: 048
     Dates: start: 20160321, end: 20160830
  2. ATORVASTATIN/PLACEBO, 40MG [Suspect]
     Active Substance: ATORVASTATIN
     Indication: CARDIOTOXICITY
     Route: 048
     Dates: start: 20160321, end: 20160830

REACTIONS (6)
  - Dehydration [None]
  - Dizziness [None]
  - Nausea [None]
  - Vomiting [None]
  - Blood potassium abnormal [None]
  - Vertigo positional [None]

NARRATIVE: CASE EVENT DATE: 20160823
